FAERS Safety Report 12945308 (Version 3)
Quarter: 2018Q1

REPORT INFORMATION
  Report Type: Spontaneous
  Country: US (occurrence: US)
  Receive Date: 20161116
  Receipt Date: 20180319
  Transmission Date: 20180508
  Serious: No
  Sender: FDA-Public Use
  Company Number: US-BIOGEN-2016BI00317520

PATIENT
  Sex: Female

DRUGS (1)
  1. TYSABRI [Suspect]
     Active Substance: NATALIZUMAB
     Indication: MULTIPLE SCLEROSIS
     Route: 042
     Dates: start: 20090917

REACTIONS (3)
  - Back disorder [Not Recovered/Not Resolved]
  - Gait inability [Recovered/Resolved]
  - Osteoporosis [Not Recovered/Not Resolved]

NARRATIVE: CASE EVENT DATE: 2010
